FAERS Safety Report 18106521 (Version 3)
Quarter: 2020Q3

REPORT INFORMATION
  Report Type: Report from Study
  Country: NL (occurrence: NL)
  Receive Date: 20200803
  Receipt Date: 20200810
  Transmission Date: 20201103
  Serious: Yes (Death, Other)
  Sender: FDA-Public Use
  Company Number: NL-OTSUKA-2020_018190

PATIENT

DRUGS (1)
  1. DECITABINE. [Suspect]
     Active Substance: DECITABINE
     Indication: ACUTE MYELOID LEUKAEMIA
     Dosage: UNK (40 MG)
     Route: 042
     Dates: start: 20200709, end: 20200718

REACTIONS (2)
  - Melaena [Fatal]
  - Sepsis [Fatal]

NARRATIVE: CASE EVENT DATE: 20200715
